FAERS Safety Report 4464573-5 (Version None)
Quarter: 2004Q3

REPORT INFORMATION
  Report Type: 
  Country: None (occurrence: None)
  Receive Date: 20040927
  Receipt Date: 20040913
  Transmission Date: 20050211
  Serious: Yes (Hospitalization)
  Sender: FDA-Public Use
  Company Number: 2003GB02044

PATIENT
  Age: 57 Year
  Sex: Female

DRUGS (2)
  1. NOLVADEX [Suspect]
     Indication: BREAST CANCER
     Dosage: 20 MG QD; PO
     Route: 048
     Dates: start: 19970703, end: 20020716
  2. DICLOFENAC [Concomitant]

REACTIONS (3)
  - CERVICAL POLYP [None]
  - ENDOMETRIAL HYPERPLASIA [None]
  - UTERINE POLYP [None]
